FAERS Safety Report 5706398-6 (Version None)
Quarter: 2008Q2

REPORT INFORMATION
  Report Type: 
  Country: None (occurrence: None)
  Receive Date: 20080415
  Receipt Date: 20080409
  Transmission Date: 20081010
  Serious: Yes (Hospitalization, Disabling)
  Sender: FDA-Public Use
  Company Number: US-MERCK-0711USA03530

PATIENT
  Age: 54 Year
  Sex: Female
  Weight: 60 kg

DRUGS (4)
  1. FOSAMAX [Suspect]
     Indication: OSTEOPOROSIS
     Route: 048
     Dates: start: 19970101, end: 20050101
  2. PREMARIN [Concomitant]
     Route: 065
     Dates: start: 19950223, end: 20030101
  3. PROVERA [Concomitant]
     Route: 065
     Dates: start: 19950223, end: 20030101
  4. FOSAMAX [Suspect]
     Route: 048
     Dates: start: 20051201, end: 20060417

REACTIONS (12)
  - ABDOMINAL PAIN UPPER [None]
  - BACK PAIN [None]
  - FALL [None]
  - NAUSEA [None]
  - OSTEOARTHRITIS [None]
  - OSTEONECROSIS [None]
  - OSTEOPOROSIS [None]
  - PNEUMONIA [None]
  - SPINAL DEFORMITY [None]
  - SPINAL DISORDER [None]
  - SPINAL FRACTURE [None]
  - WEIGHT DECREASED [None]
